FAERS Safety Report 8307447-1 (Version None)
Quarter: 2012Q2

REPORT INFORMATION
  Report Type: 
  Country: None (occurrence: None)
  Receive Date: 20120424
  Receipt Date: 20120418
  Transmission Date: 20120825
  Serious: Yes (Other)
  Sender: FDA-Public Use
  Company Number: GR-AMGEN-GRCSP2012024978

PATIENT
  Age: 23 Year
  Sex: Male

DRUGS (3)
  1. CINACALCET HYDROCHLORIDE [Suspect]
     Dosage: 30 MG, UNK
  2. CINACALCET HYDROCHLORIDE [Suspect]
     Indication: HYPERPARATHYROIDISM PRIMARY
     Dosage: 90 MG, UNK
     Route: 048
     Dates: start: 20110301
  3. CINACALCET HYDROCHLORIDE [Suspect]
     Dosage: 60 MG, UNK

REACTIONS (2)
  - MALIGNANT MELANOMA [None]
  - ECZEMA [None]
